FAERS Safety Report 8512098-X (Version None)
Quarter: 2012Q3

REPORT INFORMATION
  Report Type: 
  Country: None (occurrence: None)
  Receive Date: 20120716
  Receipt Date: 20120712
  Transmission Date: 20120928
  Serious: Yes (Disabling, Other)
  Sender: FDA-Public Use
  Company Number: PHHY2012GR053592

PATIENT
  Sex: Female
  Weight: 59 kg

DRUGS (5)
  1. ZOLEDRONOC ACID [Suspect]
     Dosage: 3.5 MG
     Route: 042
     Dates: start: 20100519, end: 20111210
  2. ANTIBIOTICS [Concomitant]
     Dosage: UNK
     Dates: start: 20120327, end: 20120327
  3. TAXOTERE [Concomitant]
     Indication: CHEMOTHERAPY
     Dosage: 70 MG
     Dates: start: 20120131
  4. GEMCITABINE [Concomitant]
     Indication: CHEMOTHERAPY
     Dosage: 2100 MG
     Dates: start: 20120131
  5. AUGMENTIN '125' [Concomitant]
     Dosage: 1000 MG, BID

REACTIONS (5)
  - OSTEONECROSIS OF JAW [None]
  - ULCER [None]
  - ERYTHEMA [None]
  - PAIN IN JAW [None]
  - SWELLING [None]
